FAERS Safety Report 10741979 (Version 11)
Quarter: 2023Q4

REPORT INFORMATION
  Report Type: Spontaneous
  Country: US (occurrence: US)
  Receive Date: 20150127
  Receipt Date: 20231207
  Transmission Date: 20240109
  Serious: Yes (Hospitalization, Other)
  Sender: FDA-Public Use
  Company Number: US-PFIZER INC-2015030234

PATIENT
  Age: 62 Year
  Sex: Female
  Weight: 83.91 kg

DRUGS (13)
  1. XELJANZ [Suspect]
     Active Substance: TOFACITINIB CITRATE
     Indication: Rheumatoid arthritis
     Dosage: 5 MG, 2X/DAY
     Route: 048
     Dates: start: 2011
  2. XELJANZ [Suspect]
     Active Substance: TOFACITINIB CITRATE
     Dosage: 5 MG (TAKE THREE TABLETS ONE DAY, AND TWO THE OTHER DAY)
  3. XELJANZ [Suspect]
     Active Substance: TOFACITINIB CITRATE
     Dosage: 10 MG, 2X/DAY
     Route: 048
  4. XELJANZ [Suspect]
     Active Substance: TOFACITINIB CITRATE
     Dosage: 15 MG, ALTERNATE DAY; (XELJANZ 5MG + XELJANZ 10MG TAKE 15 MG ON ODD DAYS TAKE 10 MG ON EVEN DAYS)
     Route: 048
  5. XELJANZ [Suspect]
     Active Substance: TOFACITINIB CITRATE
     Dosage: 10 MG, ALTERNATE DAY; (XELJANZ 5MG + XELJANZ 10MG TAKE 15 MG ON ODD DAYS TAKE 10 MG ON EVEN DAYS)
     Route: 048
  6. XELJANZ [Suspect]
     Active Substance: TOFACITINIB CITRATE
     Dosage: 10 MG, 1X/DAY (ONCE A DAY, ON ODD DAYS)
     Route: 048
     Dates: start: 202011
  7. XELJANZ [Suspect]
     Active Substance: TOFACITINIB CITRATE
     Dosage: 15 MG, 1X/DAY (( 3 TABLETS, ONCE A DAY, ON EVEN DAYS))
     Route: 048
     Dates: start: 202011
  8. XELJANZ [Suspect]
     Active Substance: TOFACITINIB CITRATE
     Dosage: 10 MG, ALTERNATE DAY (10 MG EVERY OTHER DAY)
  9. XELJANZ [Suspect]
     Active Substance: TOFACITINIB CITRATE
     Dosage: 15 MG, ALTERNATE DAY (15 MG ON THE EVERY OTHER DAY ONE)
  10. XELJANZ [Suspect]
     Active Substance: TOFACITINIB CITRATE
     Dosage: 5 MG, ALTERNATE DAY (5MG ON EVEN DAYS)
  11. XELJANZ [Suspect]
     Active Substance: TOFACITINIB CITRATE
     Dosage: 10 MG, ALTERNATE DAY (10MG ON ODD DAYS)
  12. CELEBREX [Concomitant]
     Active Substance: CELECOXIB
     Dosage: UNK
  13. TREXALL [Concomitant]
     Active Substance: METHOTREXATE SODIUM
     Dosage: UNK

REACTIONS (7)
  - Tendon rupture [Unknown]
  - Pain in extremity [Unknown]
  - Drug hypersensitivity [Unknown]
  - Body height decreased [Unknown]
  - Speech disorder [Unknown]
  - Off label use [Unknown]
  - Off label use [Unknown]
